FAERS Safety Report 9415578 (Version 4)
Quarter: 2013Q4

REPORT INFORMATION
  Report Type: Spontaneous
  Country: US (occurrence: US)
  Receive Date: 20130723
  Receipt Date: 20131121
  Transmission Date: 20140711
  Serious: Yes (Other)
  Sender: FDA-Public Use
  Company Number: US-BAYER-2013-088860

PATIENT
  Age: 34 Year
  Sex: Female
  Weight: 53.52 kg

DRUGS (5)
  1. MIRENA [Suspect]
     Indication: CONTRACEPTION
     Dosage: 20 MCG/24HR, CONT
     Route: 015
     Dates: start: 20100901
  2. NORCO [Concomitant]
     Indication: PAIN
     Dosage: UNK UNK, PRN
  3. IBUPROFEN [Concomitant]
     Indication: PAIN
     Dosage: UNK UNK, PRN
  4. TRAMADOL [Concomitant]
     Indication: PAIN
  5. MULTIVITAMINS [Concomitant]

REACTIONS (2)
  - Ectopic pregnancy with contraceptive device [None]
  - Drug ineffective [None]
